FAERS Safety Report 25742726 (Version 1)
Quarter: 2025Q3

REPORT INFORMATION
  Report Type: Report from Study
  Country: EU (occurrence: EU)
  Receive Date: 20250830
  Receipt Date: 20250830
  Transmission Date: 20251021
  Serious: Yes (Death, Other)
  Sender: CELLTRION
  Company Number: EU-ROCHE-10000358000

PATIENT

DRUGS (5)
  1. RITUXIMAB [Suspect]
     Active Substance: RITUXIMAB
     Indication: Splenic marginal zone lymphoma
     Route: 042
  2. CYCLOPHOSPHAMIDE [Concomitant]
     Active Substance: CYCLOPHOSPHAMIDE
  3. DOXORUBICIN [Concomitant]
     Active Substance: DOXORUBICIN
  4. PREDNISONE [Concomitant]
     Active Substance: PREDNISONE
  5. VINCRISTINE [Concomitant]
     Active Substance: VINCRISTINE

REACTIONS (3)
  - Splenic marginal zone lymphoma [Fatal]
  - Infusion related reaction [Unknown]
  - Intentional product use issue [Unknown]
